FAERS Safety Report 17607990 (Version 2)
Quarter: 2020Q3

REPORT INFORMATION
  Report Type: Spontaneous
  Country: US (occurrence: US)
  Receive Date: 20200331
  Receipt Date: 20200813
  Transmission Date: 20201102
  Serious: Yes (Hospitalization)
  Sender: FDA-Public Use
  Company Number: US-TEVA-2020-US-1216952

PATIENT
  Age: 46 Year
  Sex: Female
  Weight: 73.55 kg

DRUGS (4)
  1. XARELTO [Concomitant]
     Active Substance: RIVAROXABAN
  2. REVATIO [Concomitant]
     Active Substance: SILDENAFIL CITRATE
  3. TRACLEER [Concomitant]
     Active Substance: BOSENTAN
  4. EPOPROSTENOL TEVA [Suspect]
     Active Substance: EPOPROSTENOL SODIUM
     Dosage: STRENGTH: 1.5 MG/VIAL     ?DOSE AND ROUTE: 30 NG PER KG PER MIN      ?FREQUENCY: CONTINUOUS
     Route: 065
     Dates: start: 20150808

REACTIONS (3)
  - Influenza [Unknown]
  - Pneumonia [Unknown]
  - Dyspnoea [Not Recovered/Not Resolved]

NARRATIVE: CASE EVENT DATE: 2020
